FAERS Safety Report 11185529 (Version 3)
Quarter: 2016Q1

REPORT INFORMATION
  Report Type: Spontaneous
  Country: US (occurrence: US)
  Receive Date: 20150612
  Receipt Date: 20160114
  Transmission Date: 20160525
  Serious: Yes (Other)
  Sender: FDA-Public Use
  Company Number: US-ASTRAZENECA-2014SE31743

PATIENT
  Age: 22872 Day
  Sex: Male
  Weight: 102.1 kg

DRUGS (27)
  1. CIALIS [Concomitant]
     Active Substance: TADALAFIL
     Route: 048
     Dates: start: 20150523
  2. LOPRESS [Concomitant]
  3. LIPITOR [Concomitant]
     Active Substance: ATORVASTATIN CALCIUM
     Route: 048
     Dates: start: 20120215, end: 20130208
  4. LANOXIN [Concomitant]
     Active Substance: DIGOXIN
  5. COLACE [Concomitant]
     Active Substance: DOCUSATE SODIUM
  6. BYETTA [Suspect]
     Active Substance: EXENATIDE
     Indication: TYPE 2 DIABETES MELLITUS
     Route: 065
     Dates: start: 20090707
  7. BYETTA [Suspect]
     Active Substance: EXENATIDE
     Indication: TYPE 2 DIABETES MELLITUS
     Dosage: 10 MCG/0.04 ML, TWO TIMES A DAY
     Route: 058
     Dates: start: 20111021
  8. METFORMIN [Concomitant]
     Active Substance: METFORMIN HYDROCHLORIDE
     Route: 048
     Dates: start: 20120511
  9. BYETTA [Suspect]
     Active Substance: EXENATIDE
     Indication: TYPE 2 DIABETES MELLITUS
     Dosage: 10 MCG/0.04 ML, TWO TIMES A DAY
     Route: 058
     Dates: start: 20110701
  10. SYNTHROID [Concomitant]
     Active Substance: LEVOTHYROXINE SODIUM
     Route: 048
     Dates: start: 20120528
  11. AZITHROMYCIN ANHYDROUS. [Concomitant]
     Active Substance: AZITHROMYCIN ANHYDROUS
     Route: 048
     Dates: start: 20121021
  12. CEPHALEXIN. [Concomitant]
     Active Substance: CEPHALEXIN
     Route: 048
     Dates: start: 20121211
  13. OMEPRAZOLE. [Concomitant]
     Active Substance: OMEPRAZOLE
     Route: 048
     Dates: start: 20110303
  14. CIMETIDINE [Concomitant]
     Active Substance: CIMETIDINE
     Route: 048
     Dates: start: 20081209
  15. AMARYL [Concomitant]
     Active Substance: GLIMEPIRIDE
     Route: 048
  16. BYETTA [Suspect]
     Active Substance: EXENATIDE
     Indication: TYPE 2 DIABETES MELLITUS
     Route: 065
     Dates: start: 2007, end: 201109
  17. VICTOZA [Concomitant]
     Active Substance: LIRAGLUTIDE
     Dosage: 18 MG/ 3 ML, 1.8 MILIGRAMS, DAILY
     Route: 058
     Dates: start: 20111025, end: 20121018
  18. METOPROLOL TARTRATE. [Concomitant]
     Active Substance: METOPROLOL TARTRATE
     Route: 048
     Dates: start: 20120511
  19. JANUVIA [Concomitant]
     Active Substance: SITAGLIPTIN PHOSPHATE
     Route: 048
     Dates: start: 20100317
  20. TOPROL XL [Concomitant]
     Active Substance: METOPROLOL SUCCINATE
     Route: 048
  21. ZOCOR [Concomitant]
     Active Substance: SIMVASTATIN
     Route: 048
  22. TRICOR [Concomitant]
     Active Substance: FENOFIBRATE
  23. PERCOCET [Concomitant]
     Active Substance: ACETAMINOPHEN\OXYCODONE HYDROCHLORIDE
  24. NAPROXEN. [Concomitant]
     Active Substance: NAPROXEN
     Route: 046
     Dates: start: 20120511
  25. CALTRATE [Concomitant]
     Active Substance: CALCIUM CARBONATE
     Route: 048
     Dates: start: 20111202
  26. AMOXICILLIN. [Concomitant]
     Active Substance: AMOXICILLIN
     Route: 048
     Dates: start: 20130920
  27. ZESTRIL [Concomitant]
     Active Substance: LISINOPRIL
     Route: 048

REACTIONS (2)
  - Papillary thyroid cancer [Unknown]
  - Hypothyroidism [Unknown]

NARRATIVE: CASE EVENT DATE: 20090622
